FAERS Safety Report 11942630 (Version 2)
Quarter: 2016Q1

REPORT INFORMATION
  Report Type: Spontaneous
  Country: US (occurrence: US)
  Receive Date: 20160125
  Receipt Date: 20160217
  Transmission Date: 20160526
  Serious: Yes (Other)
  Sender: FDA-Public Use
  Company Number: US-BEH-2016057859

PATIENT
  Age: 30 Year
  Sex: Female
  Weight: 59 kg

DRUGS (1)
  1. HIZENTRA [Suspect]
     Active Substance: HUMAN IMMUNOGLOBULIN G
     Indication: COMBINED IMMUNODEFICIENCY
     Dosage: 0.2GM/ML
     Route: 058
     Dates: start: 20140716

REACTIONS (4)
  - Dizziness [Unknown]
  - Fall [Unknown]
  - Ankle operation [Unknown]
  - Sinusitis [Unknown]

NARRATIVE: CASE EVENT DATE: 20151130
